FAERS Safety Report 16537925 (Version 1)
Quarter: 2019Q3

REPORT INFORMATION
  Report Type: Spontaneous
  Country: DE (occurrence: DE)
  Receive Date: 20190708
  Receipt Date: 20190708
  Transmission Date: 20191004
  Serious: Yes (Life-Threatening, Hospitalization)
  Sender: FDA-Public Use
  Company Number: DE-SA-2019SA179198

PATIENT
  Age: 73 Year
  Sex: Male
  Weight: 87.5 kg

DRUGS (1)
  1. CLEXANE [Suspect]
     Active Substance: ENOXAPARIN SODIUM
     Dosage: 0.8 ML, BID (1-0-1-0)
     Route: 058

REACTIONS (2)
  - Arterial haemorrhage [Unknown]
  - Abdominal pain upper [Unknown]
